FAERS Safety Report 7458311-1 (Version None)
Quarter: 2011Q2

REPORT INFORMATION
  Report Type: 
  Country: None (occurrence: None)
  Receive Date: 20110504
  Receipt Date: 20110425
  Transmission Date: 20111010
  Serious: Yes (Hospitalization)
  Sender: FDA-Public Use
  Company Number: CN-PFIZER INC-2011080427

PATIENT
  Age: 28 Year
  Sex: Female

DRUGS (2)
  1. SULFASALAZINE [Suspect]
     Dosage: 0.5 G, 1X/DAY
     Route: 054
     Dates: start: 20080707
  2. SULFASALAZINE [Suspect]
     Dosage: .25 G TABLETS X4, TWICE DAILY
     Route: 048
     Dates: start: 20080714

REACTIONS (1)
  - LYMPHADENITIS [None]
